FAERS Safety Report 7258876-9 (Version None)
Quarter: 2011Q1

REPORT INFORMATION
  Report Type: 
  Country: None (occurrence: None)
  Receive Date: 20110129
  Receipt Date: 20100614
  Transmission Date: 20110831
  Serious: No
  Sender: FDA-Public Use
  Company Number: US-ABBOTT-10P-163-0650877-00

PATIENT
  Sex: Male

DRUGS (4)
  1. HUMIRA [Suspect]
     Indication: PSORIASIS
     Route: 058
     Dates: start: 20100525, end: 20100525
  2. METHOTREXATE [Concomitant]
     Dosage: TAPERING DOSE
     Dates: end: 20100608
  3. HUMIRA [Suspect]
     Route: 058
     Dates: start: 20100601
  4. METHOTREXATE [Concomitant]
     Indication: PSORIASIS

REACTIONS (4)
  - SWELLING FACE [None]
  - ERYTHEMA [None]
  - RASH MACULAR [None]
  - SKIN EXFOLIATION [None]
